FAERS Safety Report 11703916 (Version 4)
Quarter: 2018Q4

REPORT INFORMATION
  Report Type: Spontaneous
  Country: FR (occurrence: FR)
  Receive Date: 20151106
  Receipt Date: 20181113
  Transmission Date: 20190204
  Serious: Yes (Life-Threatening, Hospitalization, Other)
  Sender: FDA-Public Use
  Company Number: FR-ACCORD-035128

PATIENT
  Age: 40 Year
  Sex: Male

DRUGS (8)
  1. METHOTREXATE. [Suspect]
     Active Substance: METHOTREXATE
     Indication: RHEUMATOID ARTHRITIS
     Route: 030
     Dates: start: 201402
  2. CARBAMAZEPINE. [Concomitant]
     Active Substance: CARBAMAZEPINE
     Route: 048
  3. PREDNISONE. [Concomitant]
     Active Substance: PREDNISONE
  4. METOJECT [Suspect]
     Active Substance: METHOTREXATE SODIUM
     Indication: RHEUMATOID ARTHRITIS
     Dosage: 1 DF PER WEEK
     Route: 030
     Dates: start: 201401, end: 201408
  5. SPECIAFOLDINE [Concomitant]
     Active Substance: FOLIC ACID
     Dosage: 2 DF / DAY - 72 H AFTER EACH MTX INJECTION
  6. FOLIC ACID. [Concomitant]
     Active Substance: FOLIC ACID
  7. FLUTICASONE PROPIONATE/SALMETEROL XINAFOATE [Concomitant]
     Dosage: SUSPENSION FOR INHALATION IN PRESSURIZED VIAL
     Route: 055
  8. CORTANCYL [Concomitant]
     Active Substance: PREDNISONE

REACTIONS (7)
  - Apoptotic colonopathy [Recovered/Resolved]
  - Hyponatraemia [Recovered/Resolved]
  - Duodenitis [Recovered/Resolved]
  - Hypokalaemia [Recovered/Resolved]
  - Colitis [Recovered/Resolved]
  - Gastrointestinal toxicity [Recovered/Resolved]
  - Hypovolaemic shock [Recovered/Resolved]
